FAERS Safety Report 5878060-0 (Version None)
Quarter: 2008Q3

REPORT INFORMATION
  Report Type: 
  Country: None (occurrence: None)
  Receive Date: 20080911
  Receipt Date: 20080828
  Transmission Date: 20090109
  Serious: Yes (Hospitalization)
  Sender: FDA-Public Use
  Company Number: GB-ELI_LILLY_AND_COMPANY-GB200808001518

PATIENT
  Sex: Male
  Weight: 105 kg

DRUGS (11)
  1. HUMATROPE [Suspect]
     Indication: GROWTH HORMONE DEFICIENCY
     Dosage: 0.2 MG, DAILY (1/D)
     Route: 058
     Dates: start: 20020919
  2. DDAVP [Concomitant]
     Indication: DIABETES INSIPIDUS
     Dates: start: 20000101
  3. STRIANT [Concomitant]
     Indication: HYPOGONADISM
     Dates: start: 20050101
  4. HYDROCORTISONE TAB [Concomitant]
     Indication: HYPOTHYROIDISM
     Dates: start: 20000101
  5. THYROXINE [Concomitant]
     Indication: HYPOTHYROIDISM
     Dates: start: 20000101
  6. ATORVASTATIN CALCIUM [Concomitant]
     Indication: HYPERLIPIDAEMIA
     Dates: start: 20080101
  7. PERINDOPRIL ERBUMINE [Concomitant]
     Indication: HYPERTENSION
     Dates: start: 20080101
  8. METFORMIN HCL [Concomitant]
     Indication: DIABETES MELLITUS
     Dates: start: 20020101
  9. BEZAFIBRATE [Concomitant]
     Indication: HYPERLIPIDAEMIA
     Dates: start: 20030101
  10. ALENDRONIC ACID [Concomitant]
     Indication: OSTEOPENIA
     Dosage: UNK, UNK
     Dates: start: 20030101
  11. CALCICHEW [Concomitant]
     Indication: OSTEOPOROSIS
     Dates: start: 20030101

REACTIONS (3)
  - HEADACHE [None]
  - NAUSEA [None]
  - SUBARACHNOID HAEMORRHAGE [None]
